FAERS Safety Report 7329725-5 (Version None)
Quarter: 2011Q1

REPORT INFORMATION
  Report Type: 
  Country: None (occurrence: None)
  Receive Date: 20110303
  Receipt Date: 20110218
  Transmission Date: 20110831
  Serious: Yes (Hospitalization)
  Sender: FDA-Public Use
  Company Number: US-BAYER-2011-016505

PATIENT
  Sex: Male

DRUGS (1)
  1. ASPIRIN [Suspect]

REACTIONS (2)
  - ULCER HAEMORRHAGE [None]
  - DISCOMFORT [None]
